FAERS Safety Report 5759658-7 (Version None)
Quarter: 2008Q2

REPORT INFORMATION
  Report Type: 
  Country: None (occurrence: None)
  Receive Date: 20080605
  Receipt Date: 20080603
  Transmission Date: 20081010
  Serious: Yes (Life-Threatening, Hospitalization)
  Sender: FDA-Public Use
  Company Number: US-RB-000927-08

PATIENT
  Age: 42 Year
  Sex: Male

DRUGS (5)
  1. SUBOXONE [Suspect]
     Route: 060
  2. PROZAC [Concomitant]
     Indication: DEPRESSION
     Route: 048
  3. PROVENTIL [Concomitant]
     Indication: ASTHMA
     Dosage: DOSAGE UNKNOWN
     Route: 048
  4. VALTREX [Suspect]
     Dosage: PATIENT TOOK 16 1 GRAM TABLETS IN 4 HOURS TO GET RID OF A COLD SORE
     Route: 048
  5. LIPITOR [Concomitant]
     Route: 048

REACTIONS (2)
  - OVERDOSE [None]
  - RENAL FAILURE [None]
